FAERS Safety Report 23205444 (Version 1)
Quarter: 2023Q4

REPORT INFORMATION
  Report Type: Spontaneous
  Country: NO (occurrence: NO)
  Receive Date: 20231120
  Receipt Date: 20231120
  Transmission Date: 20240109
  Serious: Yes (Hospitalization)
  Sender: FDA-Public Use
  Company Number: None

PATIENT
  Age: 49 Year
  Sex: Male
  Weight: 90 kg

DRUGS (5)
  1. ZELDOX [Suspect]
     Active Substance: ZIPRASIDONE
     Indication: Sleep disorder
     Dosage: 20MG VIA ORAL ROUTE ORIGINAL REPORT: 80 MG TWICE DAILY FOLLOW-UP REPORT: 40 MG MORNING,80 MG EVENING
     Route: 048
     Dates: start: 20231019
  2. ZELDOX [Suspect]
     Active Substance: ZIPRASIDONE
     Indication: Stress
  3. ZELDOX [Suspect]
     Active Substance: ZIPRASIDONE
     Indication: Depression
  4. VALIUM [Concomitant]
     Active Substance: DIAZEPAM
     Indication: Stress
     Dosage: Q6H
     Route: 065
     Dates: start: 20231020
  5. IMOVANE [Concomitant]
     Active Substance: ZOPICLONE
     Indication: Sleep disorder
     Dosage: 11.25 MILLIGRAM, QD
     Route: 065

REACTIONS (21)
  - Sleep disorder [Not Recovered/Not Resolved]
  - Hypoacusis [Not Recovered/Not Resolved]
  - Dizziness [Not Recovered/Not Resolved]
  - Tinnitus [Not Recovered/Not Resolved]
  - Gastrointestinal disorder [Not Recovered/Not Resolved]
  - Neck pain [Not Recovered/Not Resolved]
  - Hypersensitivity [Not Recovered/Not Resolved]
  - Ear discomfort [Unknown]
  - Rhinorrhoea [Unknown]
  - Increased upper airway secretion [Unknown]
  - Ear disorder [Unknown]
  - Muscular weakness [Not Recovered/Not Resolved]
  - Lip dry [Unknown]
  - Chapped lips [Unknown]
  - Photophobia [Unknown]
  - Ocular hyperaemia [Unknown]
  - Eczema [Unknown]
  - Lacrimation increased [Unknown]
  - Pain [Unknown]
  - Stress [Unknown]
  - Visual impairment [Unknown]

NARRATIVE: CASE EVENT DATE: 20231019
